FAERS Safety Report 4991320-0 (Version None)
Quarter: 2006Q2

REPORT INFORMATION
  Report Type: 
  Country: None (occurrence: None)
  Receive Date: 20060501
  Receipt Date: 20060501
  Transmission Date: 20061013
  Serious: Yes (Other)
  Sender: FDA-Public Use
  Company Number: None

PATIENT
  Sex: Female
  Weight: 104 kg

DRUGS (2)
  1. CYCLOPHOSPHAMIDE [Suspect]
     Indication: BREAST CANCER
     Dosage: 1200 MG
     Dates: start: 20051013, end: 20051013
  2. DOXORUBICIN HCL [Suspect]
     Dosage: 120 MG
     Dates: start: 20051013, end: 20051013

REACTIONS (6)
  - ANORECTAL DISORDER [None]
  - BODY TEMPERATURE INCREASED [None]
  - HAEMORRHOIDAL HAEMORRHAGE [None]
  - NEUTROPHIL COUNT DECREASED [None]
  - POLLAKIURIA [None]
  - TENDERNESS [None]
